FAERS Safety Report 16651084 (Version 2)
Quarter: 2021Q3

REPORT INFORMATION
  Report Type: Spontaneous
  Country: FR (occurrence: FR)
  Receive Date: 20190731
  Receipt Date: 20210708
  Transmission Date: 20211014
  Serious: Yes (Death, Other)
  Sender: FDA-Public Use
  Company Number: FR-JNJFOC-20190727447

PATIENT
  Sex: Female

DRUGS (2)
  1. CAELYX [Suspect]
     Active Substance: DOXORUBICIN HYDROCHLORIDE
     Indication: OVARIAN EPITHELIAL CANCER
     Dosage: ALONE OR IN COMBINATION WITH AVELUMAB
     Route: 042
  2. AVELUMAB [Suspect]
     Active Substance: AVELUMAB
     Indication: OVARIAN EPITHELIAL CANCER
     Route: 042

REACTIONS (7)
  - Sepsis [Fatal]
  - Neutropenia [Unknown]
  - Stomatitis [Unknown]
  - Fatigue [Unknown]
  - Palmar-plantar erythrodysaesthesia syndrome [Unknown]
  - Anaemia [Unknown]
  - Rash [Unknown]
